FAERS Safety Report 7046134-7 (Version None)
Quarter: 2010Q4

REPORT INFORMATION
  Report Type: 
  Country: None (occurrence: None)
  Receive Date: 20101014
  Receipt Date: 20101011
  Transmission Date: 20110411
  Serious: Yes (Hospitalization)
  Sender: FDA-Public Use
  Company Number: US-CEPHALON-2010004834

PATIENT
  Sex: Male

DRUGS (1)
  1. PROVIGIL [Suspect]
     Indication: ASTHENIA
     Route: 048

REACTIONS (4)
  - ANEURYSM [None]
  - CONSTIPATION [None]
  - INTESTINAL OBSTRUCTION [None]
  - PNEUMONIA [None]
